FAERS Safety Report 16299624 (Version 1)
Quarter: 2019Q2

REPORT INFORMATION
  Report Type: Spontaneous
  Country: PT (occurrence: PT)
  Receive Date: 20190510
  Receipt Date: 20190510
  Transmission Date: 20190711
  Serious: Yes (Hospitalization, Other)
  Sender: FDA-Public Use
  Company Number: PT-AUROBINDO-AUR-APL-2019-024738

PATIENT

DRUGS (1)
  1. PARACETAMOL [Suspect]
     Active Substance: ACETAMINOPHEN
     Indication: PRODUCT USED FOR UNKNOWN INDICATION
     Dosage: UNK
     Route: 065

REACTIONS (15)
  - Swelling [Unknown]
  - Bone erosion [Unknown]
  - Arthritis [Unknown]
  - Joint space narrowing [Recovering/Resolving]
  - Ligament sprain [Unknown]
  - Osteomyelitis [Unknown]
  - Hyperhidrosis [Unknown]
  - Flushing [Unknown]
  - Pain [Unknown]
  - Periarthritis [Recovered/Resolved]
  - Bursitis [Recovered/Resolved]
  - Pyrexia [Recovered/Resolved]
  - Musculoskeletal pain [Unknown]
  - Chills [Unknown]
  - Fall [Unknown]
